FAERS Safety Report 8450102-8 (Version None)
Quarter: 2012Q2

REPORT INFORMATION
  Report Type: 
  Country: None (occurrence: None)
  Receive Date: 20120620
  Receipt Date: 20120618
  Transmission Date: 20120825
  Serious: Yes (Hospitalization)
  Sender: FDA-Public Use
  Company Number: IT-SANOFI-AVENTIS-2012SA036195

PATIENT
  Age: 51 Year
  Sex: Female

DRUGS (6)
  1. TRAZODONE HCL [Suspect]
     Indication: INTENTIONAL SELF-INJURY
     Dosage: STRENGTH- TRITICO (75 MG TAB EXT)
     Route: 048
     Dates: start: 20120520, end: 20120520
  2. LASIX [Suspect]
     Indication: INTENTIONAL SELF-INJURY
     Dosage: STRENGTH: 50 MG
     Route: 048
     Dates: start: 20120520, end: 20120520
  3. GABAPENTIN [Concomitant]
     Dosage: DOSE:2 UNIT(S)
     Route: 048
  4. VENLAFAXINE HYDROCHOLRIDE [Suspect]
     Indication: INTENTIONAL SELF-INJURY
     Dosage: DOSE- 75 MGSTRENGTH- 75 MG TAB EXT
     Route: 048
     Dates: start: 20120520, end: 20120520
  5. VALIUM [Concomitant]
  6. LORAZEPAM [Concomitant]
     Dosage: STRENGTH: 2.5 MG

REACTIONS (3)
  - PALPITATIONS [None]
  - VISION BLURRED [None]
  - FALL [None]
